FAERS Safety Report 9214985 (Version 1)
Quarter: 2013Q2

REPORT INFORMATION
  Report Type: Spontaneous
  Country: JP (occurrence: JP)
  Receive Date: 20130405
  Receipt Date: 20130405
  Transmission Date: 20140414
  Serious: Yes (Other)
  Sender: FDA-Public Use
  Company Number: JP-ALEXION PHARMACEUTICALS INC.-A201202509

PATIENT
  Age: 40 Year
  Sex: Male

DRUGS (7)
  1. SOLIRIS 300MG [Suspect]
     Indication: PAROXYSMAL NOCTURNAL HAEMOGLOBINURIA
     Dosage: 600 MG, QW
     Route: 042
     Dates: start: 2012
  2. SOLIRIS 300MG [Suspect]
     Dosage: 900 MG, Q2W
     Route: 042
     Dates: start: 20121122, end: 20130126
  3. PARIET [Concomitant]
  4. MUCOSTA [Concomitant]
  5. BONALON [Concomitant]
  6. BLOOD TRANSFUSION, AUXILIARY PRODUCTS [Concomitant]
     Dosage: 2 TO 4 UNITS QM
     Dates: start: 201204, end: 201211
  7. PREDONINE [Concomitant]
     Dosage: 10 MG, QD

REACTIONS (2)
  - Bone marrow transplant [Unknown]
  - Thrombocytosis [Recovered/Resolved]
